FAERS Safety Report 15681733 (Version 1)
Quarter: 2018Q4

REPORT INFORMATION
  Report Type: Spontaneous
  Country: FR (occurrence: FR)
  Receive Date: 20181203
  Receipt Date: 20181203
  Transmission Date: 20190205
  Serious: Yes (Death, Hospitalization, Other)
  Sender: FDA-Public Use
  Company Number: FR-PFIZER INC-2018490002

PATIENT
  Age: 94 Year
  Sex: Female
  Weight: 59 kg

DRUGS (13)
  1. NEURONTIN [Concomitant]
     Active Substance: GABAPENTIN
  2. XALKORI [Suspect]
     Active Substance: CRIZOTINIB
     Indication: NON-SMALL CELL LUNG CANCER STAGE IV
     Dosage: 400 MG, UNK
     Route: 048
     Dates: start: 20170616, end: 20170627
  3. SERESTA [Concomitant]
     Active Substance: OXAZEPAM
  4. EUPANTOL [Concomitant]
     Active Substance: PANTOPRAZOLE SODIUM
  5. ALDACTAZINE [Concomitant]
     Active Substance: ALTHIAZIDE\SPIRONOLACTONE
  6. AMLOR [Concomitant]
     Active Substance: AMLODIPINE BESYLATE
  7. ACUPAN [Concomitant]
     Active Substance: NEFOPAM HYDROCHLORIDE
  8. CALCIDOSE VITAMINE D [Concomitant]
     Active Substance: CALCIUM\CHOLECALCIFEROL
  9. TEMESTA EXPIDET [Concomitant]
     Active Substance: LORAZEPAM
  10. FORLAX [Concomitant]
     Active Substance: POLYETHYLENE GLYCOL 4000
  11. DOLIPRANE [Concomitant]
     Active Substance: ACETAMINOPHEN
  12. NEBILOX [Concomitant]
     Active Substance: NEBIVOLOL HYDROCHLORIDE
  13. ASPIRINE PROTECT [Concomitant]
     Active Substance: ASPIRIN

REACTIONS (3)
  - Neoplasm progression [Fatal]
  - Deep vein thrombosis [Unknown]
  - Interstitial lung disease [Recovered/Resolved]

NARRATIVE: CASE EVENT DATE: 20170627
